FAERS Safety Report 4760422-6 (Version None)
Quarter: 2005Q3

REPORT INFORMATION
  Report Type: 
  Country: None (occurrence: None)
  Receive Date: 20050902
  Receipt Date: 20050727
  Transmission Date: 20060218
  Serious: No
  Sender: FDA-Public Use
  Company Number: 2005GB01461

PATIENT
  Age: 10408 Day
  Sex: Male
  Weight: 64 kg

DRUGS (1)
  1. SEROQUEL [Suspect]
     Indication: SCHIZOPHRENIA
     Dosage: 300 MG MANE, 450 MG NOCTE
     Route: 048
     Dates: start: 20050426, end: 20050801

REACTIONS (1)
  - NEUTROPENIA [None]
